FAERS Safety Report 12280816 (Version 1)
Quarter: 2016Q2

REPORT INFORMATION
  Report Type: Spontaneous
  Country: IT (occurrence: IT)
  Receive Date: 20160419
  Receipt Date: 20160419
  Transmission Date: 20160815
  Serious: Yes (Hospitalization)
  Sender: FDA-Public Use
  Company Number: IT-SUN PHARMACEUTICAL INDUSTRIES LTD-2016RR-115082

PATIENT
  Age: 48 Year
  Sex: Female

DRUGS (1)
  1. AMOXICILLINA E ACIDO CLAVULANICO RANBAXY 875MG+125MG POLVERE PER SOSPE [Suspect]
     Active Substance: AMOXICILLIN\CLAVULANIC ACID
     Indication: PYREXIA
     Dosage: 1 DF TOTAL
     Route: 048
     Dates: start: 20160221, end: 20160221

REACTIONS (1)
  - Anaphylactic shock [Recovered/Resolved]

NARRATIVE: CASE EVENT DATE: 20160221
